FAERS Safety Report 16175082 (Version 1)
Quarter: 2019Q2

REPORT INFORMATION
  Report Type: Spontaneous
  Country: US (occurrence: US)
  Receive Date: 20190409
  Receipt Date: 20190409
  Transmission Date: 20190711
  Serious: Yes (Other)
  Sender: FDA-Public Use
  Company Number: US-ROCHE-2297829

PATIENT
  Age: 48 Year
  Sex: Female

DRUGS (3)
  1. CLARITIN [Concomitant]
     Active Substance: LORATADINE
     Dosage: UNKNOWN
     Route: 065
  2. NUTROPIN AQ [Suspect]
     Active Substance: SOMATROPIN
     Indication: GROWTH HORMONE DEFICIENCY
     Dosage: ONGOING: NO
     Route: 065
     Dates: start: 201901
  3. BENADRYL [Concomitant]
     Active Substance: DIPHENHYDRAMINE HYDROCHLORIDE
     Dosage: UNKNOWN
     Route: 065

REACTIONS (17)
  - Hypothalamo-pituitary disorder [Not Recovered/Not Resolved]
  - Bone pain [Recovered/Resolved]
  - Polyuria [Recovered/Resolved]
  - Gastrointestinal pain [Recovered/Resolved]
  - Feeling cold [Recovered/Resolved]
  - Sinusitis [Not Recovered/Not Resolved]
  - Migraine [Recovered/Resolved]
  - Paraesthesia [Recovered/Resolved]
  - Intracranial pressure increased [Recovered/Resolved]
  - Heart rate decreased [Recovered/Resolved]
  - Thyroid hormones decreased [Not Recovered/Not Resolved]
  - Myalgia [Recovered/Resolved]
  - Oropharyngeal pain [Recovered/Resolved]
  - Decreased appetite [Recovered/Resolved]
  - Tinnitus [Recovered/Resolved]
  - Vision blurred [Recovered/Resolved]
  - Thirst [Recovered/Resolved]
